FAERS Safety Report 10012330 (Version 1)
Quarter: 2014Q1

REPORT INFORMATION
  Report Type: Spontaneous
  Country: IT (occurrence: IT)
  Receive Date: 20140314
  Receipt Date: 20140314
  Transmission Date: 20141002
  Serious: Yes (Hospitalization)
  Sender: FDA-Public Use
  Company Number: IT-ABBVIE-14P-083-1212579-00

PATIENT
  Age: 57 Year
  Sex: Female

DRUGS (2)
  1. MACLADIN [Suspect]
     Indication: TRACHEITIS
     Route: 048
     Dates: start: 20140112, end: 20140119
  2. EUTIROX [Concomitant]
     Indication: PRODUCT USED FOR UNKNOWN INDICATION
     Route: 048

REACTIONS (1)
  - Angioedema [Recovered/Resolved]
